FAERS Safety Report 5098719-5 (Version None)
Quarter: 2006Q3

REPORT INFORMATION
  Report Type: 
  Country: None (occurrence: None)
  Receive Date: 20060905
  Receipt Date: 20060824
  Transmission Date: 20061208
  Serious: Yes (Hospitalization)
  Sender: FDA-Public Use
  Company Number: GXBR2006US01683

PATIENT
  Age: 51 Year
  Sex: Female
  Weight: 68.5 kg

DRUGS (5)
  1. LORATADINE [Suspect]
     Indication: DERMATITIS ALLERGIC
     Dosage: ORAL ; 10 MG ONCE/SINGLE ORAL
     Route: 048
     Dates: start: 20020601, end: 20020801
  2. LORATADINE [Suspect]
     Indication: DERMATITIS ALLERGIC
     Dosage: ORAL ; 10 MG ONCE/SINGLE ORAL
     Route: 048
     Dates: start: 20060801, end: 20060801
  3. LEVOXYL [Concomitant]
  4. POTASSIUM [Concomitant]
  5. VITEX AGNUS CASTUS [Concomitant]

REACTIONS (5)
  - BLOOD POTASSIUM DECREASED [None]
  - CEREBROVASCULAR ACCIDENT [None]
  - HEART RATE INCREASED [None]
  - POOR QUALITY DRUG ADMINISTERED [None]
  - RENAL PAIN [None]
